FAERS Safety Report 13646718 (Version 2)
Quarter: 2017Q2

REPORT INFORMATION
  Report Type: Report from Study
  Country: TW (occurrence: TW)
  Receive Date: 20170613
  Receipt Date: 20170630
  Transmission Date: 20170830
  Serious: Yes (Hospitalization, Other)
  Sender: FDA-Public Use
  Company Number: PHHY2017TW085871

PATIENT
  Age: 64 Year
  Sex: Female
  Weight: 56 kg

DRUGS (1)
  1. EXELON PATCH [Suspect]
     Active Substance: RIVASTIGMINE
     Indication: DEMENTIA ALZHEIMER^S TYPE
     Dosage: 9.5 MG, QD PATCH 10 (CM2)
     Route: 062
     Dates: start: 20160615

REACTIONS (5)
  - Cognitive disorder [Recovering/Resolving]
  - Depressed mood [Not Recovered/Not Resolved]
  - Vertebrobasilar insufficiency [Unknown]
  - Blood glucose increased [Unknown]
  - Frontotemporal dementia [Recovering/Resolving]

NARRATIVE: CASE EVENT DATE: 20170117
